FAERS Safety Report 9646326 (Version 2)
Quarter: 2013Q4

REPORT INFORMATION
  Report Type: Spontaneous
  Country: ZA (occurrence: ZA)
  Receive Date: 20131025
  Receipt Date: 20131101
  Transmission Date: 20140711
  Serious: Yes (Death, Hospitalization)
  Sender: FDA-Public Use
  Company Number: ZA-B.I. PHARMACEUTICALS,INC./RIDGEFIELD-2013-BI-34291ZA

PATIENT
  Age: 77 Year
  Sex: Female

DRUGS (14)
  1. PRADAXA [Suspect]
     Indication: ATRIAL FIBRILLATION
     Dosage: 220 MG
     Route: 048
     Dates: start: 201306, end: 20130816
  2. PREDNISONE [Concomitant]
     Indication: RHEUMATOID ARTHRITIS
  3. RENITEC [Concomitant]
  4. NORVASC [Concomitant]
  5. ASPAVOR [Concomitant]
  6. LANOXIN [Concomitant]
  7. LASIX [Concomitant]
  8. METHOTREXATE [Concomitant]
     Indication: RHEUMATOID ARTHRITIS
  9. ARYCOR [Concomitant]
  10. CALCIFEROL [Concomitant]
  11. FOLIC ACID [Concomitant]
  12. TOPZOL [Concomitant]
     Dates: start: 20130524
  13. CLEXANE [Concomitant]
     Indication: ATRIAL FIBRILLATION
  14. SLOW K [Concomitant]

REACTIONS (3)
  - Gastrointestinal haemorrhage [Fatal]
  - Anaemia [Fatal]
  - Pneumonia [Fatal]
